FAERS Safety Report 8417698-3 (Version None)
Quarter: 2012Q2

REPORT INFORMATION
  Report Type: 
  Country: None (occurrence: None)
  Receive Date: 20120607
  Receipt Date: 20120604
  Transmission Date: 20120825
  Serious: Yes (Other)
  Sender: FDA-Public Use
  Company Number: US-AMGEN-USASP2012029276

PATIENT
  Age: 78 Year
  Sex: Male
  Weight: 68.934 kg

DRUGS (11)
  1. GABAPENTIN [Concomitant]
     Dosage: 300 MG, TID
  2. POTASSIUM CHLORIDE [Concomitant]
     Dosage: 20 MEQ, QD
  3. DOXEPIN [Concomitant]
     Dosage: 25 MG, TID
  4. CRESTOR [Concomitant]
     Dosage: 10 MG, QD
  5. PREDNISONE TAB [Concomitant]
     Dosage: 8 MG, QD
  6. LOTREL [Concomitant]
     Dosage: UNK UNK, QD
  7. LEXAPRO [Concomitant]
     Dosage: 10 MG, QD
  8. PEPCID AC [Concomitant]
     Dosage: UNK UNK, QD
  9. LORTAB [Concomitant]
     Dosage: 10 MG, PRN
  10. XANAX [Concomitant]
     Dosage: 0.05 MG, BID
  11. NPLATE [Suspect]
     Indication: IDIOPATHIC THROMBOCYTOPENIC PURPURA
     Dosage: 10 MUG/KG, QWK
     Route: 058
     Dates: start: 20110511

REACTIONS (2)
  - ANAEMIA [None]
  - DRUG INEFFECTIVE [None]
